FAERS Safety Report 5378162-1 (Version None)
Quarter: 2007Q3

REPORT INFORMATION
  Report Type: 
  Country: None (occurrence: None)
  Receive Date: 20070705
  Receipt Date: 20070629
  Transmission Date: 20080115
  Serious: No
  Sender: FDA-Public Use
  Company Number: PHEH2007US04070

PATIENT
  Age: 64 Year
  Sex: Female

DRUGS (10)
  1. XANAX [Concomitant]
     Indication: ANXIETY
     Dosage: 1 MG, BID
     Route: 048
  2. POTASSIUM ACETATE [Concomitant]
     Dosage: 10 MEQ, BID
     Route: 048
  3. FUROSEMIDE [Concomitant]
     Dosage: 10 MG, QD
     Route: 048
  4. FUROSEMIDE [Concomitant]
     Dosage: 20 MG, UNK
     Route: 048
  5. NEXIUM [Concomitant]
     Dates: start: 20070329
  6. FEXOFENADINE HYDROCHLORIDE [Concomitant]
     Indication: TREMOR
  7. LISINOPRIL AND HYDROCHLOROTHIAZIDE [Concomitant]
     Indication: HYPERTENSION
     Dosage: 20-12.5 MG, BID
     Route: 048
  8. LIPITOR [Concomitant]
     Dosage: 80 MG, QD
     Route: 048
  9. ZETIA [Concomitant]
     Dosage: 10 MG, QHS
     Route: 048
  10. ZELNORM [Suspect]
     Indication: CONSTIPATION
     Dosage: 6 MG, BID
     Route: 048
     Dates: start: 20030916, end: 20070402

REACTIONS (5)
  - ABDOMINAL PAIN UPPER [None]
  - CONSTIPATION [None]
  - HAEMATOCHEZIA [None]
  - HAEMORRHOIDAL HAEMORRHAGE [None]
  - HAEMORRHOIDS [None]
